FAERS Safety Report 6053275-X (Version None)
Quarter: 2009Q1

REPORT INFORMATION
  Report Type: 
  Country: None (occurrence: None)
  Receive Date: 20090127
  Receipt Date: 20090116
  Transmission Date: 20090719
  Serious: Yes (Hospitalization)
  Sender: FDA-Public Use
  Company Number: A0693026A

PATIENT
  Age: 36 Year
  Sex: Female

DRUGS (7)
  1. AVANDIA [Suspect]
     Dosage: 4MG TWICE PER DAY
     Route: 048
     Dates: start: 19990101, end: 20040101
  2. AVANDAMET [Suspect]
     Route: 048
     Dates: start: 20060101, end: 20080101
  3. GLUCOPHAGE [Concomitant]
     Dates: start: 19980101, end: 20080601
  4. DIABETA [Concomitant]
     Dates: start: 20010101, end: 20030101
  5. HUMULIN [Concomitant]
     Dates: start: 19980101, end: 20080601
  6. VIOXX [Concomitant]
  7. LIPITOR [Concomitant]

REACTIONS (5)
  - ANEURYSM [None]
  - ANGINA PECTORIS [None]
  - CARDIAC FAILURE CONGESTIVE [None]
  - CEREBROVASCULAR ACCIDENT [None]
  - MYOCARDIAL INFARCTION [None]
